FAERS Safety Report 7909140-3 (Version None)
Quarter: 2011Q4

REPORT INFORMATION
  Report Type: 
  Country: None (occurrence: None)
  Receive Date: 20111111
  Receipt Date: 20101115
  Transmission Date: 20120403
  Serious: No
  Sender: FDA-Public Use
  Company Number: US-GLAXOSMITHKLINE-A0892886A

PATIENT
  Age: 77 Year
  Sex: Female

DRUGS (1)
  1. COREG [Suspect]
     Indication: PRODUCT USED FOR UNKNOWN INDICATION
     Dosage: 12.5MG UNKNOWN
     Route: 048
     Dates: start: 20051010

REACTIONS (4)
  - AURICULAR SWELLING [None]
  - OEDEMA PERIPHERAL [None]
  - JOINT SWELLING [None]
  - OEDEMA MOUTH [None]
